FAERS Safety Report 19681801 (Version 1)
Quarter: 2021Q3

REPORT INFORMATION
  Report Type: Spontaneous
  Country: US (occurrence: US)
  Receive Date: 20210810
  Receipt Date: 20210810
  Transmission Date: 20211014
  Serious: Yes (Other)
  Sender: FDA-Public Use
  Company Number: US-TAKEDA-2021TUS048128

PATIENT
  Sex: Male
  Weight: 66 kg

DRUGS (3)
  1. ENTYVIO [Suspect]
     Active Substance: VEDOLIZUMAB
     Indication: COLITIS ULCERATIVE
     Dosage: 300 MILLIGRAM, Q8WEEKS
     Route: 065
  2. HUMAN NORMAL IMMUNOGLOBULIN [Suspect]
     Active Substance: HUMAN IMMUNOGLOBULIN G
     Indication: CHRONIC INFLAMMATORY DEMYELINATING POLYRADICULONEUROPATHY
     Route: 065
  3. MODERNA COVID?19 VACCINE [Suspect]
     Active Substance: CX-024414
     Indication: COVID-19
     Dosage: UNK
     Route: 065
     Dates: start: 202101

REACTIONS (9)
  - Bladder cancer [Unknown]
  - Malaise [Unknown]
  - Colitis ulcerative [Unknown]
  - Proctitis [Unknown]
  - Drug ineffective [Unknown]
  - Intestinal stenosis [Unknown]
  - Faeces hard [Unknown]
  - Anorectal discomfort [Unknown]
  - Prostatitis [Unknown]
